FAERS Safety Report 16211702 (Version 1)
Quarter: 2019Q2

REPORT INFORMATION
  Report Type: Spontaneous
  Country: US (occurrence: US)
  Receive Date: 20190417
  Receipt Date: 20190417
  Transmission Date: 20190711
  Serious: Yes (Hospitalization, Disabling, Other)
  Sender: FDA-Public Use
  Company Number: None

PATIENT
  Age: 30 Year
  Sex: Female
  Weight: 52.2 kg

DRUGS (2)
  1. ESCITALOPRAM; GENERIC FOR: LEXAPRO [Suspect]
     Active Substance: ESCITALOPRAM OXALATE
     Indication: DEPRESSION
     Dosage: ?          QUANTITY:100 TABLET(S);?
     Route: 048
     Dates: start: 20190215, end: 20190312
  2. ESCITALOPRAM; GENERIC FOR: LEXAPRO [Suspect]
     Active Substance: ESCITALOPRAM OXALATE
     Indication: ANXIETY
     Dosage: ?          QUANTITY:100 TABLET(S);?
     Route: 048
     Dates: start: 20190215, end: 20190312

REACTIONS (4)
  - Bipolar I disorder [None]
  - Therapy change [None]
  - Insomnia [None]
  - Hypomania [None]

NARRATIVE: CASE EVENT DATE: 20190306
